FAERS Safety Report 12936274 (Version 1)
Quarter: 2016Q4

REPORT INFORMATION
  Report Type: Spontaneous
  Country: US (occurrence: US)
  Receive Date: 20161114
  Receipt Date: 20161114
  Transmission Date: 20170207
  Serious: Yes (Other)
  Sender: FDA-Public Use
  Company Number: US-IROKO PHARMACEUTICALS LLC-US-I09001-16-00184

PATIENT
  Age: 67 Year
  Sex: Male

DRUGS (4)
  1. ATENOLOL. [Concomitant]
     Active Substance: ATENOLOL
     Indication: PRODUCT USED FOR UNKNOWN INDICATION
     Route: 065
  2. NERVE PILL [Concomitant]
     Indication: PRODUCT USED FOR UNKNOWN INDICATION
     Route: 065
  3. VIVLODEX [Suspect]
     Active Substance: MELOXICAM
     Indication: TENDONITIS
     Route: 065
     Dates: start: 20161103, end: 20161103
  4. THYROID PILL [Concomitant]
     Indication: PRODUCT USED FOR UNKNOWN INDICATION
     Route: 065

REACTIONS (6)
  - Muscle spasms [Unknown]
  - Off label use [Unknown]
  - Unevaluable event [Unknown]
  - Discomfort [Unknown]
  - Walking aid user [Unknown]
  - Pain in extremity [Unknown]

NARRATIVE: CASE EVENT DATE: 201611
